FAERS Safety Report 24610578 (Version 1)
Quarter: 2024Q4

REPORT INFORMATION
  Report Type: Report from Study
  Country: BE (occurrence: BE)
  Receive Date: 20241112
  Receipt Date: 20241112
  Transmission Date: 20250115
  Serious: Yes (Death, Hospitalization, Other)
  Sender: JOHNSON AND JOHNSON
  Company Number: BE-JNJFOC-20240925756

PATIENT
  Age: 5 Decade
  Sex: Female
  Weight: 63 kg

DRUGS (4)
  1. MACITENTAN [Suspect]
     Active Substance: MACITENTAN
     Indication: Pulmonary arterial hypertension
     Route: 048
     Dates: start: 20211228
  2. CELLCEPT [Suspect]
     Active Substance: MYCOPHENOLATE MOFETIL
     Indication: Product used for unknown indication
     Route: 065
  3. TADALAFIL [Concomitant]
     Active Substance: TADALAFIL
     Indication: Pulmonary arterial hypertension
     Route: 048
     Dates: start: 20230227, end: 20230502
  4. TADALAFIL [Concomitant]
     Active Substance: TADALAFIL
     Route: 048
     Dates: start: 20230502

REACTIONS (15)
  - Right ventricular failure [Fatal]
  - Pulmonary hypertension [Fatal]
  - Systemic scleroderma [Fatal]
  - Hypercoagulation [Fatal]
  - Cardiac arrest [Fatal]
  - Asthenia [Not Recovered/Not Resolved]
  - Weight decreased [Not Recovered/Not Resolved]
  - Pneumonia [Not Recovered/Not Resolved]
  - Depressed level of consciousness [Unknown]
  - Haemodialysis [Not Recovered/Not Resolved]
  - Posterior reversible encephalopathy syndrome [Recovering/Resolving]
  - Renal failure [Unknown]
  - Hypertension [Unknown]
  - Vomiting [Unknown]
  - Palpitations [Recovering/Resolving]

NARRATIVE: CASE EVENT DATE: 20240822
